FAERS Safety Report 17907610 (Version 1)
Quarter: 2020Q2

REPORT INFORMATION
  Report Type: Spontaneous
  Country: BR (occurrence: BR)
  Receive Date: 20200617
  Receipt Date: 20200617
  Transmission Date: 20200714
  Serious: Yes (Life-Threatening, Other)
  Sender: FDA-Public Use
  Company Number: BR-PFIZER INC-2020233114

PATIENT
  Age: 47 Year
  Sex: Female

DRUGS (1)
  1. IBRANCE [Suspect]
     Active Substance: PALBOCICLIB
     Dosage: UNK
     Dates: start: 201911

REACTIONS (10)
  - Anaemia [Not Recovered/Not Resolved]
  - Loss of consciousness [Unknown]
  - Macrocytosis [Unknown]
  - Poikilocytosis [Unknown]
  - Tachycardia [Unknown]
  - Lymphadenopathy [Recovering/Resolving]
  - Fatigue [Unknown]
  - Gamma-glutamyltransferase increased [Unknown]
  - Thrombocytopenia [Unknown]
  - Anisocytosis [Unknown]
